FAERS Safety Report 5902430-5 (Version None)
Quarter: 2008Q3

REPORT INFORMATION
  Report Type: 
  Country: None (occurrence: None)
  Receive Date: 20080929
  Receipt Date: 20080924
  Transmission Date: 20090109
  Serious: Yes (Hospitalization, Congenital Anomaly, Other)
  Sender: FDA-Public Use
  Company Number: US-AMGEN-US253205

PATIENT
  Sex: Female

DRUGS (7)
  1. ENBREL [Suspect]
     Indication: RHEUMATOID ARTHRITIS
     Route: 064
     Dates: start: 20061104, end: 20070609
  2. VITAMIN TAB [Concomitant]
     Route: 064
  3. NEXIUM [Concomitant]
     Route: 064
     Dates: start: 20061104, end: 20070609
  4. DICYCLOMINE HYDROCHLORIDE [Concomitant]
     Route: 064
     Dates: start: 20061104, end: 20070609
  5. ACETAMINOPHEN [Concomitant]
     Route: 064
     Dates: start: 20061104, end: 20070609
  6. SINGULAIR [Concomitant]
     Route: 064
     Dates: start: 20061104, end: 20070105
  7. UNSPECIFIED ANTIHYPERTENSIVE AGENT [Concomitant]
     Route: 064
     Dates: start: 20070514, end: 20070906

REACTIONS (5)
  - CYANOSIS NEONATAL [None]
  - HYPERTONIA [None]
  - HYPOSPADIAS [None]
  - INGUINAL HERNIA [None]
  - SMALL FOR DATES BABY [None]
